FAERS Safety Report 14471443 (Version 3)
Quarter: 2018Q4

REPORT INFORMATION
  Report Type: Report from Study
  Country: BR (occurrence: BR)
  Receive Date: 20180131
  Receipt Date: 20181106
  Transmission Date: 20190204
  Serious: Yes (Other)
  Sender: FDA-Public Use
  Company Number: PHHY2018BR005333

PATIENT
  Age: 68 Year
  Sex: Female
  Weight: 70 kg

DRUGS (10)
  1. DIOVAN [Suspect]
     Active Substance: VALSARTAN
     Dosage: 80 MG, QD
     Route: 048
  2. ALPRAZOLAM. [Concomitant]
     Active Substance: ALPRAZOLAM
     Indication: INSOMNIA
     Dosage: 2 MG, HALF DAY
     Route: 048
  3. ALDACTONE [Concomitant]
     Active Substance: SPIRONOLACTONE
     Indication: CARDIAC DISORDER
     Dosage: 2 DF, QD
     Route: 048
     Dates: start: 2015
  4. PROCORALAN [Concomitant]
     Active Substance: IVABRADINE
     Indication: CARDIAC DISORDER
     Dosage: 1 DF, QD
     Route: 048
     Dates: start: 2015
  5. DIOVAN HCT [Suspect]
     Active Substance: HYDROCHLOROTHIAZIDE\VALSARTAN
     Indication: HYPERTENSION
     Dosage: 1 DF (HYDROCHLOROTHIAZIDE 12.5 MG, VALSARTAN 80 MG), QHS
     Route: 048
  6. DIOVAN [Suspect]
     Active Substance: VALSARTAN
     Indication: HYPERTENSION
     Dosage: 160 MG, QD
     Route: 048
  7. SIMVASTATIN. [Concomitant]
     Active Substance: SIMVASTATIN
     Indication: CARDIAC DISORDER
     Dosage: 1 DF, QD
     Route: 048
     Dates: start: 2015
  8. GLIFAGE [Concomitant]
     Active Substance: METFORMIN HYDROCHLORIDE
     Indication: GLUCOSE TOLERANCE IMPAIRED
     Dosage: 1 DF, QD
     Route: 048
  9. DIVELOL [Concomitant]
     Indication: CARDIAC DISORDER
     Dosage: 2 DF, QD
     Route: 048
     Dates: start: 2015
  10. CHLORTHALIDONE. [Concomitant]
     Active Substance: CHLORTHALIDONE
     Indication: CARDIAC DISORDER
     Dosage: 1 DF, QD
     Route: 048
     Dates: start: 2015

REACTIONS (14)
  - Cardiomyopathy [Recovering/Resolving]
  - Cold sweat [Recovered/Resolved]
  - Cardiomegaly [Not Recovered/Not Resolved]
  - Depression [Recovered/Resolved]
  - Blood pressure fluctuation [Recovered/Resolved]
  - Hypotension [Unknown]
  - Hypoglycaemia [Recovered/Resolved]
  - Fatigue [Unknown]
  - Ventricular dysfunction [Recovering/Resolving]
  - Blood pressure systolic increased [Recovered/Resolved]
  - Weight increased [Unknown]
  - Peripheral swelling [Unknown]
  - Hypotension [Recovered/Resolved]
  - Somnolence [Recovered/Resolved]

NARRATIVE: CASE EVENT DATE: 201712
